FAERS Safety Report 18732824 (Version 8)
Quarter: 2021Q3

REPORT INFORMATION
  Report Type: Report from Study
  Country: US (occurrence: US)
  Receive Date: 20210112
  Receipt Date: 20210819
  Transmission Date: 20211014
  Serious: No
  Sender: FDA-Public Use
  Company Number: NVSC2021US004376

PATIENT
  Age: 74 Year
  Sex: Male

DRUGS (3)
  1. COSENTYX [Suspect]
     Active Substance: SECUKINUMAB
     Indication: PSORIASIS
     Dosage: 300 MG, OTHER (QW FOR 5 WEEKS THEN Q4W)
     Route: 058
  2. COSENTYX [Suspect]
     Active Substance: SECUKINUMAB
     Indication: PSORIASIS
     Route: 058
  3. COSENTYX [Suspect]
     Active Substance: SECUKINUMAB
     Route: 058

REACTIONS (12)
  - Acne [Unknown]
  - Rash [Unknown]
  - Skin discolouration [Unknown]
  - Arthralgia [Unknown]
  - Drug ineffective [Unknown]
  - Skin exfoliation [Unknown]
  - Pain [Unknown]
  - Rash macular [Unknown]
  - Product dose omission issue [Unknown]
  - Spinal column injury [Unknown]
  - Psoriasis [Unknown]
  - Arthritis [Unknown]

NARRATIVE: CASE EVENT DATE: 20201227
